FAERS Safety Report 25099743 (Version 1)
Quarter: 2025Q1

REPORT INFORMATION
  Report Type: Spontaneous
  Country: US (occurrence: US)
  Receive Date: 20250320
  Receipt Date: 20250320
  Transmission Date: 20250409
  Serious: Yes (Hospitalization, Other)
  Sender: AUROBINDO
  Company Number: US-MLMSERVICE-20250227-PI431026-00271-1

PATIENT
  Age: 21 Year
  Sex: Male

DRUGS (6)
  1. PREDNISONE [Suspect]
     Active Substance: PREDNISONE
     Indication: Lymphocytic hypophysitis
     Dosage: 30 MILLIGRAM, ONCE A DAY (HIGH DOSE)
     Route: 065
     Dates: start: 2022
  2. PREDNISONE [Suspect]
     Active Substance: PREDNISONE
     Dosage: 5 MILLIGRAM, ONCE A DAY (MAINTENANCE)
     Route: 065
     Dates: start: 2022
  3. DESMOPRESSIN [Concomitant]
     Active Substance: DESMOPRESSIN
     Indication: Diabetes insipidus
     Route: 065
     Dates: start: 2021
  4. HYDROCORTISONE [Concomitant]
     Active Substance: HYDROCORTISONE
     Indication: Secondary adrenocortical insufficiency
     Route: 065
     Dates: start: 2021
  5. LEVOTHYROXINE [Concomitant]
     Active Substance: LEVOTHYROXINE
     Indication: Central hypothyroidism
     Route: 065
     Dates: start: 2021
  6. TESTOSTERONE [Concomitant]
     Active Substance: TESTOSTERONE
     Indication: Secondary hypogonadism
     Route: 065
     Dates: start: 2021

REACTIONS (1)
  - Testicular seminoma (pure) [Recovered/Resolved]

NARRATIVE: CASE EVENT DATE: 20220101
